FAERS Safety Report 9200006 (Version 4)
Quarter: 2014Q1

REPORT INFORMATION
  Report Type: Spontaneous
  Country: US (occurrence: US)
  Receive Date: 20130329
  Receipt Date: 20140129
  Transmission Date: 20141002
  Serious: Yes (Hospitalization)
  Sender: FDA-Public Use
  Company Number: US-GLAXOSMITHKLINE-A1017726A

PATIENT
  Age: 66 Year
  Sex: Female

DRUGS (1)
  1. IMITREX [Suspect]
     Indication: HEADACHE
     Dosage: 100MG UNKNOWN
     Dates: start: 20100503

REACTIONS (5)
  - Foot fracture [Unknown]
  - Fall [Unknown]
  - Headache [Unknown]
  - Walking aid user [Not Recovered/Not Resolved]
  - Migraine [Unknown]
